FAERS Safety Report 7571434-1 (Version None)
Quarter: 2011Q2

REPORT INFORMATION
  Report Type: 
  Country: None (occurrence: None)
  Receive Date: 20110624
  Receipt Date: 20110620
  Transmission Date: 20111010
  Serious: Yes (Death, Other)
  Sender: FDA-Public Use
  Company Number: PHHY2011AU53591

PATIENT
  Age: 95 Year
  Sex: Female

DRUGS (1)
  1. CEFTRIAXONE [Suspect]
     Indication: PNEUMONIA

REACTIONS (6)
  - HEART RATE IRREGULAR [None]
  - SWOLLEN TONGUE [None]
  - RENAL IMPAIRMENT [None]
  - DEATH [None]
  - OEDEMA PERIPHERAL [None]
  - TONGUE DISCOLOURATION [None]
